FAERS Safety Report 7443670-6 (Version None)
Quarter: 2011Q2

REPORT INFORMATION
  Report Type: 
  Country: None (occurrence: None)
  Receive Date: 20110428
  Receipt Date: 20110415
  Transmission Date: 20111010
  Serious: Yes (Hospitalization, Other)
  Sender: FDA-Public Use
  Company Number: JP-GENZYME-CAMP-1001575

PATIENT
  Sex: Male
  Weight: 70 kg

DRUGS (7)
  1. MAGNESIUM OXIDE [Concomitant]
     Indication: CONSTIPATION
     Dosage: UNK
     Route: 065
     Dates: start: 20110216
  2. ROXATIDINE ACETATE HCL [Concomitant]
     Indication: PROPHYLAXIS
     Dosage: UNK
     Route: 065
     Dates: start: 20110222
  3. ALLOPURINOL [Concomitant]
     Indication: HYPERURICAEMIA
     Dosage: UNK
     Route: 065
     Dates: start: 20110222
  4. CAMPATH [Suspect]
     Dosage: 10 MG, UNK
     Route: 065
     Dates: start: 20100608, end: 20100621
  5. METFFORMIN HYDROCHLORIDE [Concomitant]
     Indication: TYPE 2 DIABETES MELLITUS
     Dosage: UNK
     Route: 065
  6. CAMPATH [Suspect]
     Indication: CHRONIC LYMPHOCYTIC LEUKAEMIA
     Dosage: 3 MG, UNK
     Route: 065
     Dates: start: 20100607, end: 20100607
  7. NATEGLINIDE [Concomitant]
     Indication: TYPE 2 DIABETES MELLITUS
     Dosage: UNK
     Route: 065

REACTIONS (1)
  - UNEVALUABLE EVENT [None]
